FAERS Safety Report 13688714 (Version 1)
Quarter: 2017Q2

REPORT INFORMATION
  Report Type: Spontaneous
  Country: US (occurrence: US)
  Receive Date: 20170623
  Receipt Date: 20170623
  Transmission Date: 20170830
  Serious: Yes (Other)
  Sender: FDA-Public Use
  Company Number: None

PATIENT
  Age: 36 Year
  Sex: Female
  Weight: 78.75 kg

DRUGS (1)
  1. HUMIRA [Suspect]
     Active Substance: ADALIMUMAB
     Indication: ANKYLOSING SPONDYLITIS
     Dosage: QUANTITY:1 INJECTION(S);OTHER FREQUENCY: 1 INJECTION EVERY OTHER WEEK;OTHER ROUTE:SUBCUTANEOUSLY?
     Route: 058
     Dates: start: 20170203, end: 20170602

REACTIONS (1)
  - Weight increased [None]

NARRATIVE: CASE EVENT DATE: 20170602
